FAERS Safety Report 14421209 (Version 5)
Quarter: 2018Q2

REPORT INFORMATION
  Report Type: Spontaneous
  Country: US (occurrence: US)
  Receive Date: 20180122
  Receipt Date: 20180508
  Transmission Date: 20180711
  Serious: Yes (Hospitalization)
  Sender: FDA-Public Use
  Company Number: US-ACTELION-A-US2018-166258

PATIENT
  Age: 45 Year
  Sex: Female
  Weight: 84.81 kg

DRUGS (2)
  1. REMODULIN [Concomitant]
     Active Substance: TREPROSTINIL
  2. OPSUMIT [Suspect]
     Active Substance: MACITENTAN
     Indication: PULMONARY ARTERIAL HYPERTENSION
     Dosage: 10 MG, QD
     Route: 048
     Dates: start: 20150923

REACTIONS (3)
  - Catheter management [Unknown]
  - Septic shock [Unknown]
  - Sepsis [Unknown]

NARRATIVE: CASE EVENT DATE: 20180110
